FAERS Safety Report 12456299 (Version 1)
Quarter: 2016Q2

REPORT INFORMATION
  Report Type: Spontaneous
  Country: US (occurrence: US)
  Receive Date: 20160610
  Receipt Date: 20160610
  Transmission Date: 20160815
  Serious: No
  Sender: FDA-Public Use
  Company Number: US-BAYER-2016-112230

PATIENT
  Sex: Female
  Weight: 74.83 kg

DRUGS (3)
  1. CALCIUM [CALCIUM CARBONATE] [Concomitant]
  2. MULTIVITAMIN [Concomitant]
     Active Substance: VITAMINS
  3. MIRALAX [Suspect]
     Active Substance: POLYETHYLENE GLYCOL 3350
     Indication: COLONOSCOPY
     Dosage: 2 SMALL BOTTLES, ONCE, 3-4 YEARS AGO
     Route: 048

REACTIONS (1)
  - Product use issue [None]
